FAERS Safety Report 6010153-X (Version None)
Quarter: 2008Q4

REPORT INFORMATION
  Report Type: 
  Country: None (occurrence: None)
  Receive Date: 20081217
  Receipt Date: 20081217
  Transmission Date: 20090506
  Serious: Yes (Other)
  Sender: FDA-Public Use
  Company Number: None

PATIENT
  Age: 53 Year
  Sex: Male
  Weight: 90.7194 kg

DRUGS (1)
  1. ISOSORBIDE MONONTITRATE [Suspect]
     Indication: MYOCARDIAL INFARCTION
     Dosage: 1 PILL 30 MG. ONCE A DAY MOUTH
     Route: 048
     Dates: start: 20081031, end: 20081125

REACTIONS (8)
  - BALANCE DISORDER [None]
  - CHEST PAIN [None]
  - DIZZINESS [None]
  - HEADACHE [None]
  - INCORRECT DOSE ADMINISTERED [None]
  - INSOMNIA [None]
  - PALPITATIONS [None]
  - VISION BLURRED [None]
